FAERS Safety Report 7725637-3 (Version None)
Quarter: 2011Q3

REPORT INFORMATION
  Report Type: 
  Country: None (occurrence: None)
  Receive Date: 20110902
  Receipt Date: 20110825
  Transmission Date: 20111222
  Serious: Yes (Hospitalization, Other)
  Sender: FDA-Public Use
  Company Number: US-ASTELLAS-2011US004877

PATIENT
  Sex: Female
  Weight: 78 kg

DRUGS (9)
  1. MULTIVITAMINS, COMBINATIONS [Concomitant]
     Indication: PRODUCT USED FOR UNKNOWN INDICATION
     Dosage: 1 DF, UID/QD
     Route: 048
  2. IMITREX [Concomitant]
     Indication: PRODUCT USED FOR UNKNOWN INDICATION
     Dosage: 100 MG, PRN
     Route: 048
  3. PROGRAF [Suspect]
     Dosage: 2 MG, BID
     Route: 048
     Dates: start: 20110824
  4. PROGRAF [Suspect]
     Dosage: 1 MG, BID
     Route: 048
     Dates: start: 20110701, end: 20110824
  5. SENOKOT [Concomitant]
     Indication: PRODUCT USED FOR UNKNOWN INDICATION
     Dosage: 17.2 MG, QHS
     Route: 048
  6. PROGRAF [Suspect]
     Indication: LIVER TRANSPLANT
     Dosage: 3 MG, BID
     Route: 048
     Dates: start: 20060126, end: 20110701
  7. DULCOLAX [Concomitant]
     Indication: CONSTIPATION
     Dosage: 10 MG, UID/QD
     Route: 054
  8. COLACE [Concomitant]
     Indication: PRODUCT USED FOR UNKNOWN INDICATION
     Dosage: 100 MG, BID
     Route: 048
  9. HYDROCORTISONE [Concomitant]
     Indication: PRURITUS
     Dosage: 1 %, PRN
     Route: 061

REACTIONS (15)
  - SYNCOPE [None]
  - BILE DUCT STENOSIS [None]
  - IMMUNOSUPPRESSANT DRUG LEVEL INCREASED [None]
  - HAEMATEMESIS [None]
  - FALL [None]
  - GASTRITIS [None]
  - HYSTERECTOMY [None]
  - DIARRHOEA [None]
  - LIVER TRANSPLANT REJECTION [None]
  - PYREXIA [None]
  - DIABETES MELLITUS [None]
  - URINARY TRACT INFECTION [None]
  - BACK PAIN [None]
  - DRUG INEFFECTIVE [None]
  - HYPERTENSION [None]
